FAERS Safety Report 8131225-X (Version None)
Quarter: 2012Q1

REPORT INFORMATION
  Report Type: 
  Country: None (occurrence: None)
  Receive Date: 20120213
  Receipt Date: 20120210
  Transmission Date: 20120608
  Serious: Yes (Death, Hospitalization, Other)
  Sender: FDA-Public Use
  Company Number: BR-BAYER-2012-005651

PATIENT
  Age: 53 Year
  Sex: Male
  Weight: 77 kg

DRUGS (79)
  1. SORAFENIB (RAF KINASE INHIBITOR) [Suspect]
     Dosage: 400 MG, QD (CYCLE 17, DAY 1)
     Dates: start: 20120112, end: 20120117
  2. BLINDED SORAFENIB (RAF KINASE INHIBITOR) [Suspect]
     Dosage: 100 MG, QD (CYCLE 7, DAY 22)
     Dates: start: 20101207, end: 20101227
  3. BLINDED SORAFENIB (RAF KINASE INHIBITOR) [Suspect]
     Dosage: 100 MG, QD (CYCLE 8, DAY 1)
     Dates: start: 20101228, end: 20110117
  4. BLINDED SORAFENIB (RAF KINASE INHIBITOR) [Suspect]
     Dosage: 100 MG, QD (CYCLE 11, DAY 22)
     Dates: start: 20110526, end: 20110620
  5. BLINDED SORAFENIB (RAF KINASE INHIBITOR) [Suspect]
     Dosage: 100 MG, QD (CYCLE 12, DAY 22)
     Dates: start: 20110707, end: 20110727
  6. BLINDED SORAFENIB (RAF KINASE INHIBITOR) [Suspect]
     Dosage: 100 MG, QD (CYCLE 14, DAY 1)
     Dates: start: 20110908, end: 20110928
  7. BLINDED SORAFENIB (RAF KINASE INHIBITOR) [Suspect]
     Dosage: 100 MG, QD (CYCLE 15, DAY 22)
     Dates: start: 20111110, end: 20111130
  8. BLINDED SORAFENIB (RAF KINASE INHIBITOR) [Suspect]
     Dosage: 100 MG, QD (CYCLE 16, DAY 22)
     Dates: start: 20111221, end: 20120111
  9. BLINDED SORAFENIB (RAF KINASE INHIBITOR) [Suspect]
     Dosage: 100 MG, QD (CYCLE 17, DAY 1)
     Dates: start: 20120112, end: 20120117
  10. SERUM PHYSIOLOGICAL [Concomitant]
     Indication: DEHYDRATION
     Dosage: TOTAL DAILY DOSE 2000 ML
     Dates: start: 20120117, end: 20120118
  11. SORAFENIB (RAF KINASE INHIBITOR) [Suspect]
     Dosage: 400 MG, QD (CYCLE 2, DAY 22)
     Dates: start: 20100511, end: 20100531
  12. SORAFENIB (RAF KINASE INHIBITOR) [Suspect]
     Dosage: 400 MG, QD (CYCLE 5, DAY 22)
     Dates: start: 20100914, end: 20101004
  13. SORAFENIB (RAF KINASE INHIBITOR) [Suspect]
     Dosage: 400 MG, QD (CYCLE 10, DAY 22)
     Dates: start: 20110414, end: 20110510
  14. SORAFENIB (RAF KINASE INHIBITOR) [Suspect]
     Dosage: 400 MG, QD (CYCLE 16, DAY 1)
     Dates: start: 20111201, end: 20111220
  15. BLINDED SORAFENIB (RAF KINASE INHIBITOR) [Suspect]
     Dosage: 100 MG, QD (CYCLE 3, DAY 1)
     Dates: start: 20100601, end: 20100614
  16. BLINDED SORAFENIB (RAF KINASE INHIBITOR) [Suspect]
     Dosage: 100 MG, QD (CYCLE 9, DAY 22)
     Dates: start: 20110301, end: 20110323
  17. CLONAZEPAM [Concomitant]
     Indication: INSOMNIA
     Dosage: TOTAL DAILY DOSE 2 MG
     Dates: start: 20050101, end: 20100413
  18. MIDAZOLAM [Concomitant]
     Indication: INSOMNIA
     Dosage: TOTAL DAILY DOSE 15 MG
     Dates: start: 20100325, end: 20100817
  19. OMNIPAQUE 140 [Concomitant]
     Indication: COMPUTERISED TOMOGRAM
     Dosage: TOTAL DAILY DOSE 100 ML
     Dates: start: 20100305
  20. POTASSIUM CHLORIDE [Concomitant]
     Indication: DEHYDRATION
     Dosage: 10 ML, UNK
     Dates: start: 20120118, end: 20120118
  21. SORAFENIB (RAF KINASE INHIBITOR) [Suspect]
     Dosage: 400 MG, QD (CYCLE 6, DAY 1)
     Dates: start: 20101005, end: 20101025
  22. SORAFENIB (RAF KINASE INHIBITOR) [Suspect]
     Dosage: 400 MG, QD (CYCLE 7, DAY 1)
     Dates: start: 20101116, end: 20101206
  23. SORAFENIB (RAF KINASE INHIBITOR) [Suspect]
     Dosage: 400 MG, QD (CYCLE 8, DAY 22)
     Dates: start: 20110118, end: 20110207
  24. SORAFENIB (RAF KINASE INHIBITOR) [Suspect]
     Dosage: 400 MG, QD (CYCLE 14, DAY 22)
     Dates: start: 20110929, end: 20111019
  25. BLINDED SORAFENIB (RAF KINASE INHIBITOR) [Suspect]
     Indication: HEPATIC NEOPLASM MALIGNANT
     Dosage: 150 MG, QD (CYCLE 1, DAY 1)
     Dates: start: 20100309, end: 20100323
  26. BLINDED SORAFENIB (RAF KINASE INHIBITOR) [Suspect]
     Dosage: 100 MG, QD (CYCLE 1, DAY 22)
     Dates: start: 20100330, end: 20100413
  27. BLINDED SORAFENIB (RAF KINASE INHIBITOR) [Suspect]
     Dosage: 100 MG, QD (CYCLE 2, DAY 22)
     Dates: start: 20100511, end: 20100531
  28. SORAFENIB (RAF KINASE INHIBITOR) [Suspect]
     Indication: HEPATIC NEOPLASM MALIGNANT
     Dosage: 400 MG, BID (CYCLE 1, DAY 1)
     Dates: start: 20100309, end: 20100323
  29. SORAFENIB (RAF KINASE INHIBITOR) [Suspect]
     Dosage: 400 MG, QD (CYCLE 3, DAY 1)
     Dates: start: 20100601, end: 20100614
  30. SORAFENIB (RAF KINASE INHIBITOR) [Suspect]
     Dosage: 400 MG, QD (CYCLE 3, DAY 22)
     Dates: start: 20100615, end: 20100712
  31. SORAFENIB (RAF KINASE INHIBITOR) [Suspect]
     Dosage: 400 MG, QD (CYCLE 8, DAY 1)
     Dates: start: 20101228, end: 20110117
  32. SORAFENIB (RAF KINASE INHIBITOR) [Suspect]
     Dosage: 400 MG, QD (CYCLE 13, DAY 22)
     Dates: start: 20110818, end: 20110907
  33. BLINDED SORAFENIB (RAF KINASE INHIBITOR) [Suspect]
     Dosage: 100 MG, QD (CYCLE 4, DAY 1)
     Dates: start: 20100713, end: 20100802
  34. BLINDED SORAFENIB (RAF KINASE INHIBITOR) [Suspect]
     Dosage: 100 MG, QD (CYCLE 9, DAY 1)
     Dates: start: 20110208, end: 20110228
  35. BLINDED SORAFENIB (RAF KINASE INHIBITOR) [Suspect]
     Dosage: 100 MG, QD (CYCLE 11, DAY 1)
     Dates: start: 20110511, end: 20110525
  36. ACETAMINOPHEN [Concomitant]
     Indication: ABDOMINAL PAIN
     Dosage: TOTAL DAILY DOSE 2000 MG
     Dates: start: 20120112
  37. METOCLOPRAMIDE HYDROCHLORIDE [Concomitant]
     Indication: PROPHYLAXIS OF NAUSEA AND VOMITING
     Dosage: TOTAL DAILY DOSE 6 ML
     Dates: start: 20120117, end: 20120123
  38. DEXTROSE 5% [Concomitant]
     Indication: DEHYDRATION
     Dosage: TOTAL DAILY DOSE 80 ML
     Dates: start: 20120118, end: 20120118
  39. SORAFENIB (RAF KINASE INHIBITOR) [Suspect]
     Dosage: 400 MG, BID (CYCLE 1, DAY 22)
     Dates: start: 20100330, end: 20100413
  40. SORAFENIB (RAF KINASE INHIBITOR) [Suspect]
     Dosage: 400 MG, QD (CYCLE 6, DAY 22)
     Dates: start: 20101026, end: 20101115
  41. SORAFENIB (RAF KINASE INHIBITOR) [Suspect]
     Dosage: 400 MG, QD (CYCLE 9, DAY 1)
     Dates: start: 20110208, end: 20110228
  42. SORAFENIB (RAF KINASE INHIBITOR) [Suspect]
     Dosage: 400 MG, QD (CYCLE 9, DAY 22)
     Dates: start: 20110301, end: 20110323
  43. SORAFENIB (RAF KINASE INHIBITOR) [Suspect]
     Dosage: 400 MG, QD (CYCLE 12, DAY 1)
     Dates: start: 20110621, end: 20110706
  44. SORAFENIB (RAF KINASE INHIBITOR) [Suspect]
     Dosage: 400 MG, QD (CYCLE 13, DAY 1)
     Dates: start: 20110728, end: 20110817
  45. SORAFENIB (RAF KINASE INHIBITOR) [Suspect]
     Dosage: 400 MG, QD (CYCLE 15, DAY 1)
     Dates: start: 20111020, end: 20111109
  46. BLINDED SORAFENIB (RAF KINASE INHIBITOR) [Suspect]
     Dosage: 100 MG, QD (CYCLE 10, DAY 22)
     Dates: start: 20110414, end: 20110510
  47. BLINDED SORAFENIB (RAF KINASE INHIBITOR) [Suspect]
     Dosage: 100 MG, QD (CYCLE 15, DAY 1)
     Dates: start: 20111020, end: 20111109
  48. 2-PROPANOL [Concomitant]
     Indication: HYPERTENSION
     Dosage: TOTAL DAILY DOSE 80 MG
     Dates: start: 20120112
  49. SORAFENIB (RAF KINASE INHIBITOR) [Suspect]
     Dosage: 400 MG, QD (CYCLE 2, DAY 1)
     Dates: start: 20100420, end: 20100510
  50. SORAFENIB (RAF KINASE INHIBITOR) [Suspect]
     Dosage: 400 MG, QD (CYCLE 4, DAY 1)
     Dates: start: 20100713, end: 20100802
  51. SORAFENIB (RAF KINASE INHIBITOR) [Suspect]
     Dosage: 400 MG, QD (CYCLE 7, DAY 22)
     Dates: start: 20101207, end: 20101227
  52. SORAFENIB (RAF KINASE INHIBITOR) [Suspect]
     Dosage: 400 MG, QD (CYCLE 11, DAY 1)
     Dates: start: 20110511, end: 20110525
  53. SORAFENIB (RAF KINASE INHIBITOR) [Suspect]
     Dosage: 400 MG, QD (CYCLE 12, DAY 22)
     Dates: start: 20110707, end: 20110727
  54. SORAFENIB (RAF KINASE INHIBITOR) [Suspect]
     Dosage: 400 MG, QD (CYCLE 15, DAY 22)
     Dates: start: 20111110, end: 20111130
  55. BLINDED SORAFENIB (RAF KINASE INHIBITOR) [Suspect]
     Dosage: 100 MG, QD (CYCLE 3, DAY 22)
     Dates: start: 20100615, end: 20100712
  56. BLINDED SORAFENIB (RAF KINASE INHIBITOR) [Suspect]
     Dosage: 100 MG, QD (CYCLE 4, DAY 22)
     Dates: start: 20100803, end: 20100823
  57. BLINDED SORAFENIB (RAF KINASE INHIBITOR) [Suspect]
     Dosage: 100 MG, QD (CYCLE 5, DAY 1)
     Dates: start: 20100824, end: 20100913
  58. BLINDED SORAFENIB (RAF KINASE INHIBITOR) [Suspect]
     Dosage: 100 MG, QD (CYCLE 13, DAY 1)
     Dates: start: 20110728, end: 20110817
  59. BLINDED SORAFENIB (RAF KINASE INHIBITOR) [Suspect]
     Dosage: 100 MG, QD (CYCLE 14, DAY 22)
     Dates: start: 20110929, end: 20111019
  60. TYLEX [PARACETAMOL] [Concomitant]
     Indication: ABDOMINAL PAIN
     Dosage: 120/2000 MG PRN
     Dates: start: 20120110, end: 20120112
  61. AMLODIPINE [Concomitant]
     Indication: HYPERTENSION
     Dosage: TOTAL DAILY DOSE 5 MG
     Dates: start: 20050101, end: 20120112
  62. SODIUM CHLORIDE [Concomitant]
     Indication: DEHYDRATION
     Dosage: 10 ML, UNK
     Dates: start: 20120118, end: 20120118
  63. SORAFENIB (RAF KINASE INHIBITOR) [Suspect]
     Dosage: 400 MG, QD (CYCLE 5, DAY 1)
     Dates: start: 20100824, end: 20100913
  64. SORAFENIB (RAF KINASE INHIBITOR) [Suspect]
     Dosage: 400 MG, QD (CYCLE 10, DAY 1)
     Dates: start: 20110324, end: 20110413
  65. SORAFENIB (RAF KINASE INHIBITOR) [Suspect]
     Dosage: 400 MG, QD (CYCLE 11, DAY 22)
     Dates: start: 20110526, end: 20110620
  66. SORAFENIB (RAF KINASE INHIBITOR) [Suspect]
     Dosage: 400 MG, QD (CYCLE 14, DAY 1)
     Dates: start: 20110908, end: 20110928
  67. SORAFENIB (RAF KINASE INHIBITOR) [Suspect]
     Dosage: 400 MG, QD (CYCLE 16, DAY 22)
     Dates: start: 20111221, end: 20120111
  68. BLINDED SORAFENIB (RAF KINASE INHIBITOR) [Suspect]
     Dosage: 100 MG, QD (CYCLE 2, DAY 1)
     Dates: start: 20100420, end: 20100510
  69. BLINDED SORAFENIB (RAF KINASE INHIBITOR) [Suspect]
     Dosage: 100 MG, QD (CYCLE 6, DAY 1)
     Dates: start: 20101005, end: 20101025
  70. BLINDED SORAFENIB (RAF KINASE INHIBITOR) [Suspect]
     Dosage: 100 MG, QD (CYCLE 6, DAY 22)
     Dates: start: 20101026, end: 20101115
  71. BLINDED SORAFENIB (RAF KINASE INHIBITOR) [Suspect]
     Dosage: 100 MG, QD (CYCLE 10, DAY 1)
     Dates: start: 20110324, end: 20110413
  72. BLINDED SORAFENIB (RAF KINASE INHIBITOR) [Suspect]
     Dosage: 100 MG, QD (CYCLE 12, DAY 1)
     Dates: start: 20110621, end: 20110706
  73. BLINDED SORAFENIB (RAF KINASE INHIBITOR) [Suspect]
     Dosage: 100 MG, QD (CYCLE 13, DAY 22)
     Dates: start: 20110818, end: 20110907
  74. BLINDED SORAFENIB (RAF KINASE INHIBITOR) [Suspect]
     Dosage: 100 MG, QD (CYCLE 16, DAY 1)
     Dates: start: 20111201, end: 20111220
  75. DEXTROSE 5% [Concomitant]
     Dosage: TOTAL DAILY DOSE 500 ML
     Dates: start: 20120118, end: 20120118
  76. SORAFENIB (RAF KINASE INHIBITOR) [Suspect]
     Dosage: 400 MG, QD (CYCLE 4, DAY 22)
     Dates: start: 20100803, end: 20100823
  77. BLINDED SORAFENIB (RAF KINASE INHIBITOR) [Suspect]
     Dosage: 100 MG, QD (CYCLE 5, DAY 22)
     Dates: start: 20100914, end: 20101004
  78. BLINDED SORAFENIB (RAF KINASE INHIBITOR) [Suspect]
     Dosage: 100 MG, QD (CYCLE 7, DAY 1)
     Dates: start: 20101116, end: 20101206
  79. BLINDED SORAFENIB (RAF KINASE INHIBITOR) [Suspect]
     Dosage: 100 MG, QD (CYCLE 8, DAY 22)
     Dates: start: 20110118, end: 20110207

REACTIONS (14)
  - RASH [None]
  - PALMAR-PLANTAR ERYTHRODYSAESTHESIA SYNDROME [None]
  - GASTROINTESTINAL HAEMORRHAGE [None]
  - DRY MOUTH [None]
  - HEPATIC FAILURE [None]
  - HEPATIC ENCEPHALOPATHY [None]
  - JAUNDICE [None]
  - ASCITES [None]
  - ANXIETY [None]
  - FATIGUE [None]
  - VARICES OESOPHAGEAL [None]
  - ABDOMINAL PAIN UPPER [None]
  - CONFUSIONAL STATE [None]
  - DIARRHOEA [None]
